FAERS Safety Report 5834170-5 (Version None)
Quarter: 2008Q3

REPORT INFORMATION
  Report Type: 
  Country: None (occurrence: None)
  Receive Date: 20080731
  Receipt Date: 20080726
  Transmission Date: 20090109
  Serious: Yes (Hospitalization, Other)
  Sender: FDA-Public Use
  Company Number: 2008SP015343

PATIENT
  Age: 56 Year
  Sex: Male

DRUGS (2)
  1. PEG-INTRON [Suspect]
     Indication: HEPATITIS C
     Dosage: SC
     Route: 058
     Dates: start: 20080118
  2. RIBAVIRIN [Suspect]
     Indication: HEPATITIS C
     Dosage: PO
     Route: 048
     Dates: start: 20080118

REACTIONS (12)
  - ANAEMIA [None]
  - ANXIETY [None]
  - DEHYDRATION [None]
  - DIZZINESS [None]
  - FLUSHING [None]
  - HAEMORRHOIDS [None]
  - HYPERTENSION [None]
  - INCOHERENT [None]
  - INJECTION SITE MASS [None]
  - ROAD TRAFFIC ACCIDENT [None]
  - SYNCOPE [None]
  - VOMITING [None]
